FAERS Safety Report 6776117-3 (Version None)
Quarter: 2010Q2

REPORT INFORMATION
  Report Type: 
  Country: None (occurrence: None)
  Receive Date: 20100617
  Receipt Date: 20100602
  Transmission Date: 20101027
  Serious: Yes (Hospitalization, Other)
  Sender: FDA-Public Use
  Company Number: CA-GENENTECH-298671

PATIENT
  Sex: Male
  Weight: 77 kg

DRUGS (8)
  1. XOLAIR [Suspect]
     Indication: ASTHMA
     Dosage: 375 MG, Q2W
     Route: 058
     Dates: start: 20100129
  2. XOLAIR [Suspect]
     Dosage: 375 MG, Q2W
     Route: 058
     Dates: start: 20100223
  3. SPIRIVA [Concomitant]
     Indication: DRUG USE FOR UNKNOWN INDICATION
  4. VENTOLIN [Concomitant]
     Indication: DRUG USE FOR UNKNOWN INDICATION
  5. NASONEX [Concomitant]
     Indication: DRUG USE FOR UNKNOWN INDICATION
  6. ADVAIR DISKUS 100/50 [Concomitant]
     Indication: DRUG USE FOR UNKNOWN INDICATION
  7. LOSEC I.V. [Concomitant]
     Indication: DRUG USE FOR UNKNOWN INDICATION
  8. PREDNISONE [Concomitant]
     Indication: DRUG USE FOR UNKNOWN INDICATION

REACTIONS (10)
  - BLOOD PRESSURE INCREASED [None]
  - CYANOSIS [None]
  - DRUG INEFFECTIVE [None]
  - DYSPHONIA [None]
  - DYSPNOEA [None]
  - ERYTHEMA [None]
  - OXYGEN SATURATION DECREASED [None]
  - PNEUMONIA [None]
  - RESPIRATORY RATE INCREASED [None]
  - WHEEZING [None]
